FAERS Safety Report 11936188 (Version 2)
Quarter: 2016Q2

REPORT INFORMATION
  Report Type: Report from Study
  Country: US (occurrence: US)
  Receive Date: 20160121
  Receipt Date: 20160516
  Transmission Date: 20160815
  Serious: Yes (Hospitalization, Other)
  Sender: FDA-Public Use
  Company Number: US-AMGEN-USASL2016000350

PATIENT
  Age: 87 Year
  Sex: Male

DRUGS (3)
  1. REVLIMID [Suspect]
     Active Substance: LENALIDOMIDE
     Dosage: 25 MG, EVERY OTHER DAY
     Route: 065
  2. REVLIMID [Suspect]
     Active Substance: LENALIDOMIDE
     Indication: PLASMA CELL MYELOMA
     Dosage: 25 MG, QD
     Route: 065
  3. KYPROLIS [Suspect]
     Active Substance: CARFILZOMIB
     Indication: PLASMA CELL MYELOMA
     Dosage: 2 TIMES/WK,  3 WEEKS ON AND 1 WEEK OFF
     Route: 065
     Dates: start: 201511

REACTIONS (10)
  - Dyspnoea [Unknown]
  - Renal impairment [Unknown]
  - Dysgeusia [Unknown]
  - Hypoacusis [Unknown]
  - Fatigue [Unknown]
  - Dehydration [Unknown]
  - Mobility decreased [Unknown]
  - Decreased appetite [Unknown]
  - Platelet transfusion [Unknown]
  - Light chain analysis increased [Unknown]

NARRATIVE: CASE EVENT DATE: 2015
